FAERS Safety Report 7982158-0 (Version None)
Quarter: 2011Q4

REPORT INFORMATION
  Report Type: 
  Country: None (occurrence: None)
  Receive Date: 20111215
  Receipt Date: 20111005
  Transmission Date: 20120403
  Serious: No
  Sender: FDA-Public Use
  Company Number: US-BAYER-2011-098410

PATIENT
  Age: 58 Year
  Sex: Female

DRUGS (3)
  1. ALEVE (CAPLET) [Suspect]
     Indication: PAIN
  2. VITAMIN B-12 [Concomitant]
  3. ALKA-SELTZER PLUS COLD (UNKNOWN FORMULATION) [Suspect]
     Indication: SEASONAL ALLERGY
     Route: 048

REACTIONS (2)
  - RASH [None]
  - CHAPPED LIPS [None]
